FAERS Safety Report 9297098 (Version 2)
Quarter: 2013Q3

REPORT INFORMATION
  Report Type: Spontaneous
  Country: CA (occurrence: CA)
  Receive Date: 20130520
  Receipt Date: 20130715
  Transmission Date: 20140515
  Serious: Yes (Hospitalization, Other)
  Sender: FDA-Public Use
  Company Number: CA-ROCHE-777180

PATIENT
  Age: 37 Year
  Sex: Female
  Weight: 61 kg

DRUGS (9)
  1. ACTEMRA [Suspect]
     Indication: RHEUMATOID ARTHRITIS
     Route: 042
     Dates: start: 201102, end: 201305
  2. ACTEMRA [Suspect]
     Route: 042
     Dates: start: 20110329, end: 20110329
  3. ACTEMRA [Suspect]
     Route: 042
     Dates: start: 20110426, end: 20130501
  4. PREDNISONE [Suspect]
     Indication: RHEUMATOID ARTHRITIS
     Route: 048
  5. DICLOFENAC [Suspect]
     Indication: RHEUMATOID ARTHRITIS
     Dosage: INDICATION: RHEUMATOID ARTHRITIS INFLAMMATION
     Route: 048
  6. SYNTHROID [Concomitant]
     Indication: HYPOTHYROIDISM
     Dosage: DOSE 0.75 (UNITS NOT MENTIONED)
     Route: 065
  7. VENLAFAXINE [Concomitant]
     Indication: DEPRESSION
     Route: 065
  8. ENBREL [Concomitant]
  9. MICRONOR [Concomitant]

REACTIONS (12)
  - Abortion spontaneous [Unknown]
  - Gastrointestinal haemorrhage [Recovered/Resolved]
  - Rheumatoid arthritis [Not Recovered/Not Resolved]
  - Increased tendency to bruise [Not Recovered/Not Resolved]
  - Pain in extremity [Unknown]
  - Rheumatoid arthritis [Not Recovered/Not Resolved]
  - Infection [Recovered/Resolved]
  - Pregnancy [Unknown]
  - Drug ineffective [Not Recovered/Not Resolved]
  - Joint range of motion decreased [Not Recovered/Not Resolved]
  - Arthralgia [Unknown]
  - Musculoskeletal pain [Unknown]
